FAERS Safety Report 7431036-4 (Version None)
Quarter: 2011Q2

REPORT INFORMATION
  Report Type: 
  Country: None (occurrence: None)
  Receive Date: 20110421
  Receipt Date: 20110413
  Transmission Date: 20111010
  Serious: Yes (Hospitalization)
  Sender: FDA-Public Use
  Company Number: US-B.I. PHARMACEUTICALS,INC./RIDGEFIELD-2011-BP-05008BP

PATIENT
  Sex: Male

DRUGS (22)
  1. LISINOPRIL [Concomitant]
     Indication: BLOOD PRESSURE MANAGEMENT
     Dosage: 10 MG
  2. LASIX [Concomitant]
     Indication: FLUID RETENTION
     Dosage: 10 MG
  3. BROVANA (ARFORMOTEROL TARTRATE) [Concomitant]
     Indication: ASTHMA
  4. OXYGEN [Concomitant]
  5. FORADIL AEROLIZER (FORMOTEROL FUMARATE INHALATION POWDER) [Concomitant]
     Indication: ASTHMA
  6. FLUNISOLIDE [Concomitant]
  7. BROVANA (ARFORMOTEROL TARTRATE) [Concomitant]
     Indication: CHRONIC OBSTRUCTIVE PULMONARY DISEASE
  8. LASIX [Concomitant]
     Indication: CARDIAC FAILURE CONGESTIVE
  9. EXELON [Concomitant]
     Indication: DEMENTIA ALZHEIMER'S TYPE
  10. OMEPRAZOLE [Concomitant]
     Indication: GASTROOESOPHAGEAL REFLUX DISEASE
     Dosage: 20 MG
  11. VITAMIN D [Concomitant]
     Dosage: 6000 U
  12. XANAX [Concomitant]
     Indication: ANXIETY
     Dosage: 0.5 MG
  13. FORADIL AEROLIZER (FORMOTEROL FUMARATE INHALATION POWDER) [Concomitant]
     Indication: CHRONIC OBSTRUCTIVE PULMONARY DISEASE
     Dosage: 24 MCG
  14. ARTIFICIAL TEARS SOLUTION [Concomitant]
     Indication: DRY EYE
  15. VITAMIN B12 PLUS FOLIC ACID [Concomitant]
  16. PRADAXA [Suspect]
     Indication: ATRIAL FIBRILLATION
     Dosage: 300 MG
     Route: 048
     Dates: start: 20110201
  17. DILTIAZEM HCL [Concomitant]
     Indication: ANGINA PECTORIS
  18. PRADAXA [Suspect]
     Indication: CARDIAC ASSISTANCE DEVICE USER
  19. DILTIAZEM HCL [Concomitant]
     Indication: BLOOD PRESSURE MANAGEMENT
     Dosage: 240 MG
  20. PRADAXA [Suspect]
     Indication: CARDIAC FAILURE
  21. FLOMAX [Concomitant]
     Indication: PROSTATIC DISORDER
     Dosage: 0.4 MG
  22. RESTORIL [Concomitant]
     Indication: SLEEP DISORDER
     Dosage: 30 MG

REACTIONS (3)
  - HEART RATE DECREASED [None]
  - ABDOMINAL DISCOMFORT [None]
  - DYSPEPSIA [None]
